FAERS Safety Report 10580191 (Version 1)
Quarter: 2014Q4

REPORT INFORMATION
  Report Type: Spontaneous
  Country: AU (occurrence: AU)
  Receive Date: 20141112
  Receipt Date: 20141112
  Transmission Date: 20150529
  Serious: Yes (Death)
  Sender: FDA-Public Use
  Company Number: AU-ABBVIE-14P-008-1305112-00

PATIENT
  Age: 91 Year

DRUGS (1)
  1. LUCRIN (LEUPROLIDE ACETATE) [Suspect]
     Active Substance: LEUPROLIDE ACETATE
     Indication: PRODUCT USED FOR UNKNOWN INDICATION
     Route: 065
     Dates: start: 201211, end: 201410

REACTIONS (2)
  - Prostate cancer [Fatal]
  - Disease complication [None]

NARRATIVE: CASE EVENT DATE: 201410
